FAERS Safety Report 5578851-X (Version None)
Quarter: 2007Q4

REPORT INFORMATION
  Report Type: 
  Country: None (occurrence: None)
  Receive Date: 20071228
  Receipt Date: 20071217
  Transmission Date: 20080405
  Serious: No
  Sender: FDA-Public Use
  Company Number: 017604

PATIENT
  Age: 20 Year
  Sex: Female
  Weight: 65.8 kg

DRUGS (3)
  1. CLARAVIS [Suspect]
     Dosage: 40 MG, QD, ORAL; 20 MG, TID, ORAL
     Route: 048
     Dates: end: 20070610
  2. CLARAVIS [Suspect]
     Dosage: 40 MG, QD, ORAL; 20 MG, TID, ORAL
     Route: 048
     Dates: start: 20070222
  3. ORTHO TRI-CYCLEN LO [Concomitant]

REACTIONS (6)
  - DRUG EXPOSURE DURING PREGNANCY [None]
  - MENSTRUATION IRREGULAR [None]
  - PREGNANCY [None]
  - RASH ERYTHEMATOUS [None]
  - SELF-MEDICATION [None]
  - TREATMENT NONCOMPLIANCE [None]
